FAERS Safety Report 5636578-X (Version None)
Quarter: 2008Q1

REPORT INFORMATION
  Report Type: 
  Country: None (occurrence: None)
  Receive Date: 20080219
  Receipt Date: 20080219
  Transmission Date: 20080703
  Serious: Yes (Other)
  Sender: FDA-Public Use
  Company Number: None

PATIENT
  Sex: Female
  Weight: 32.659 kg

DRUGS (2)
  1. XOPENEX [Suspect]
     Indication: PULMONARY FUNCTION TEST
     Dosage: .63 MG 2X DAY INHAL 1 TIME
     Route: 055
     Dates: start: 20080205, end: 20080205
  2. ALBUTEROL [Suspect]
     Indication: DYSPNOEA
     Dosage: AS NEEDED

REACTIONS (3)
  - CHEST DISCOMFORT [None]
  - DYSPNOEA [None]
  - HEART RATE INCREASED [None]
